FAERS Safety Report 14570858 (Version 1)
Quarter: 2018Q1

REPORT INFORMATION
  Report Type: Report from Study
  Country: None (occurrence: AT)
  Receive Date: 20180226
  Receipt Date: 20180226
  Transmission Date: 20180509
  Serious: Yes (Hospitalization)
  Sender: FDA-Public Use
  Company Number: AT-ABBVIE-18K-009-2264638-00

PATIENT
  Age: 34 Year
  Sex: Female

DRUGS (1)
  1. HUMIRA [Suspect]
     Active Substance: ADALIMUMAB
     Indication: CROHN^S DISEASE
     Route: 058
     Dates: start: 20180124, end: 20180207

REACTIONS (4)
  - Colonic abscess [Recovering/Resolving]
  - Procedural pain [Recovering/Resolving]
  - Intestinal fistula [Recovering/Resolving]
  - Scar [Unknown]

NARRATIVE: CASE EVENT DATE: 201802
